FAERS Safety Report 13760766 (Version 1)
Quarter: 2017Q3

REPORT INFORMATION
  Report Type: Spontaneous
  Country: US (occurrence: US)
  Receive Date: 20170717
  Receipt Date: 20170717
  Transmission Date: 20171127
  Serious: No
  Sender: FDA-Public Use
  Company Number: US-MYLANLABS-2017M1031523

PATIENT
  Age: 55 Year
  Sex: Female
  Weight: 99.77 kg

DRUGS (1)
  1. ESTRADIOL TRANSDERMAL SYSTEM [Suspect]
     Active Substance: ESTRADIOL
     Indication: BLOOD OESTROGEN DECREASED
     Dosage: 0.1 MG, QD, CHANGED (TW)
     Route: 062
     Dates: start: 20170501, end: 20170520

REACTIONS (4)
  - Application site burn [Recovered/Resolved]
  - Product adhesion issue [Recovered/Resolved]
  - Application site pruritus [Recovered/Resolved]
  - Application site pain [Recovered/Resolved]

NARRATIVE: CASE EVENT DATE: 20170501
